FAERS Safety Report 20548491 (Version 4)
Quarter: 2022Q2

REPORT INFORMATION
  Report Type: Spontaneous
  Country: US (occurrence: US)
  Receive Date: 20220303
  Receipt Date: 20220601
  Transmission Date: 20220721
  Serious: No
  Sender: FDA-Public Use
  Company Number: US-PFIZER INC-2021845977

PATIENT
  Age: 66 Year
  Sex: Female

DRUGS (1)
  1. XELJANZ XR [Suspect]
     Active Substance: TOFACITINIB CITRATE
     Dosage: 11 MG

REACTIONS (6)
  - Illness [Unknown]
  - Pain [Unknown]
  - Limb discomfort [Unknown]
  - Muscular weakness [Unknown]
  - Arthropathy [Unknown]
  - Pain in extremity [Unknown]
